FAERS Safety Report 7968619-9 (Version None)
Quarter: 2011Q4

REPORT INFORMATION
  Report Type: 
  Country: None (occurrence: None)
  Receive Date: 20111207
  Receipt Date: 20111123
  Transmission Date: 20120403
  Serious: Yes (Death)
  Sender: FDA-Public Use
  Company Number: 2011-528

PATIENT
  Age: 53 Year
  Sex: Female

DRUGS (1)
  1. ZICONOTIDE (ZICONOTIDE) INTRATHECAL INFUSION [Suspect]
     Indication: FACIAL NEURALGIA
     Dosage: 0.03-0.53 UG, ONCE/HOUR, INTRATHECAL
     Route: 037

REACTIONS (5)
  - AGITATION [None]
  - CIRCULATORY COLLAPSE [None]
  - CARDIAC FAILURE [None]
  - CONFUSIONAL STATE [None]
  - DEVICE DISLOCATION [None]
